FAERS Safety Report 12411923 (Version 2)
Quarter: 2016Q3

REPORT INFORMATION
  Report Type: Spontaneous
  Country: US (occurrence: US)
  Receive Date: 20160527
  Receipt Date: 20160803
  Transmission Date: 20161109
  Serious: Yes (Other)
  Sender: FDA-Public Use
  Company Number: US-PFIZER INC-2016267001

PATIENT
  Age: 57 Year
  Sex: Male

DRUGS (2)
  1. MILRINONE [Suspect]
     Active Substance: MILRINONE
     Indication: ISCHAEMIC CARDIOMYOPATHY
     Dosage: INFUSION AT 0.4 MCG/KG/MIN
     Dates: start: 2012
  2. MILRINONE [Suspect]
     Active Substance: MILRINONE
     Indication: CARDIAC FAILURE ACUTE

REACTIONS (1)
  - Drug dependence [Unknown]

NARRATIVE: CASE EVENT DATE: 2012
